FAERS Safety Report 8610985-5 (Version None)
Quarter: 2012Q3

REPORT INFORMATION
  Report Type: 
  Country: None (occurrence: None)
  Receive Date: 20120822
  Receipt Date: 20120813
  Transmission Date: 20120928
  Serious: Yes (Life-Threatening, Hospitalization, Other)
  Sender: FDA-Public Use
  Company Number: DE-JNJFOC-20120810230

PATIENT
  Sex: Female
  Weight: 65 kg

DRUGS (4)
  1. XARELTO [Suspect]
     Indication: DEEP VEIN THROMBOSIS
     Route: 048
     Dates: start: 20120504, end: 20120510
  2. ETHINYL ESTRADIOL [Concomitant]
     Indication: ORAL CONTRACEPTION
  3. TRAMADOL HYDROCHLORIDE [Concomitant]
     Route: 004
  4. NOVALGIN [Concomitant]

REACTIONS (3)
  - NAUSEA [None]
  - PULMONARY EMBOLISM [None]
  - VOMITING [None]
